FAERS Safety Report 20905663 (Version 1)
Quarter: 2022Q2

REPORT INFORMATION
  Report Type: Spontaneous
  Country: US (occurrence: None)
  Receive Date: 20220601
  Receipt Date: 20220601
  Transmission Date: 20220721
  Serious: Yes (Disabling, Other)
  Sender: FDA-Public Use
  Company Number: None

PATIENT
  Age: 43 Year
  Sex: Female
  Weight: 67.5 kg

DRUGS (4)
  1. ZONISAMIDE [Suspect]
     Active Substance: ZONISAMIDE
     Route: 048
     Dates: start: 20210325
  2. KEPPRA [Concomitant]
     Active Substance: LEVETIRACETAM
  3. TRIMETHOPRIM [Concomitant]
     Active Substance: TRIMETHOPRIM
  4. PROBIOTICS NOS [Concomitant]
     Active Substance: PROBIOTICS NOS

REACTIONS (2)
  - Obsessive-compulsive disorder [None]
  - Insomnia [None]

NARRATIVE: CASE EVENT DATE: 20211001
